FAERS Safety Report 9451573 (Version 1)
Quarter: 2013Q3

REPORT INFORMATION
  Report Type: Spontaneous
  Country: JP (occurrence: JP)
  Receive Date: 20130811
  Receipt Date: 20130811
  Transmission Date: 20140515
  Serious: Yes (Hospitalization)
  Sender: FDA-Public Use
  Company Number: JP-CUBIST PHARMACEUTICAL, INC.-2012CBST000047

PATIENT
  Age: 90 Year
  Sex: Male

DRUGS (8)
  1. CUBICIN [Suspect]
     Indication: ARTHRITIS BACTERIAL
     Dosage: 6 MG/KG, QD
     Route: 041
     Dates: start: 20121106, end: 20121111
  2. CUBICIN [Suspect]
     Indication: OFF LABEL USE
     Dosage: 6 MG/KG, QOD
     Route: 041
     Dates: start: 20121025, end: 20121105
  3. IRBETAN [Concomitant]
     Indication: HYPERTENSION
     Dosage: 100 MG, QD
     Route: 048
  4. MAINTATE [Concomitant]
     Indication: HYPERTENSION
     Dosage: 2.5 MG, QD
  5. MEXITIL [Concomitant]
     Indication: ARRHYTHMIA
     Dosage: 100 MG, BID
  6. ITOROL [Concomitant]
     Indication: ANGINA PECTORIS
     Dosage: 40 MG, QD
  7. ADALAT CR [Concomitant]
     Indication: HYPERTENSION
     Dosage: 40 MG, QD
  8. ADALAT CR [Concomitant]
     Indication: ANGINA PECTORIS

REACTIONS (1)
  - Pneumonia [Recovered/Resolved]
